FAERS Safety Report 13077996 (Version 1)
Quarter: 2017Q1

REPORT INFORMATION
  Report Type: Spontaneous
  Country: GB (occurrence: GB)
  Receive Date: 20170102
  Receipt Date: 20170102
  Transmission Date: 20170428
  Serious: Yes (Hospitalization, Disabling)
  Sender: FDA-Public Use
  Company Number: GB-CIPLA LTD.-2016GB23938

PATIENT

DRUGS (3)
  1. STATINS [Suspect]
     Active Substance: UNSPECIFIED INGREDIENT
     Dosage: UNK
     Route: 065
  2. TAMSULOSIN [Suspect]
     Active Substance: TAMSULOSIN
     Dosage: UNK
     Route: 065
  3. FINASTERIDE. [Suspect]
     Active Substance: FINASTERIDE
     Dosage: UNK
     Route: 065

REACTIONS (2)
  - Myopathy [Not Recovered/Not Resolved]
  - Necrosis [Not Recovered/Not Resolved]
